FAERS Safety Report 7970772-8 (Version None)
Quarter: 2011Q4

REPORT INFORMATION
  Report Type: 
  Country: None (occurrence: None)
  Receive Date: 20111212
  Receipt Date: 20111202
  Transmission Date: 20120403
  Serious: Yes (Other)
  Sender: FDA-Public Use
  Company Number: PHHY2011DE106350

PATIENT
  Sex: Male

DRUGS (1)
  1. VALSARTAN [Suspect]
     Dosage: UNK UKN, UNK
     Route: 048
     Dates: start: 20050101

REACTIONS (2)
  - HEPATIC STEATOSIS [None]
  - ABDOMINAL PAIN UPPER [None]
